FAERS Safety Report 8270288-8 (Version None)
Quarter: 2012Q2

REPORT INFORMATION
  Report Type: 
  Country: None (occurrence: None)
  Receive Date: 20120410
  Receipt Date: 20120402
  Transmission Date: 20120825
  Serious: Yes (Hospitalization)
  Sender: FDA-Public Use
  Company Number: FR-SANOFI-AVENTIS-2012SA022888

PATIENT
  Age: 81 Year
  Sex: Female

DRUGS (3)
  1. LEXOMIL [Concomitant]
     Route: 048
  2. LOVENOX [Suspect]
     Route: 058
     Dates: start: 20120301, end: 20120303
  3. PERINDOPRIL ERBUMINE [Concomitant]
     Route: 048

REACTIONS (4)
  - ARTHRITIS [None]
  - ARTHRALGIA [None]
  - HYPERTHERMIA [None]
  - PURPURA [None]
